FAERS Safety Report 4892830-7 (Version None)
Quarter: 2005Q4

REPORT INFORMATION
  Report Type: 
  Country: None (occurrence: None)
  Receive Date: 20051220
  Receipt Date: 20050922
  Transmission Date: 20060501
  Serious: Yes (Other)
  Sender: FDA-Public Use
  Company Number: 418851

PATIENT
  Sex: Female

DRUGS (1)
  1. BONIVA [Suspect]

REACTIONS (3)
  - JOINT RANGE OF MOTION DECREASED [None]
  - MYALGIA [None]
  - PAIN IN EXTREMITY [None]
